FAERS Safety Report 9536784 (Version 1)
Quarter: 2013Q3

REPORT INFORMATION
  Report Type: Spontaneous
  Country: US (occurrence: US)
  Receive Date: 20130919
  Receipt Date: 20130919
  Transmission Date: 20140515
  Serious: No
  Sender: FDA-Public Use
  Company Number: US-009507513-1309USA008540

PATIENT
  Age: 67 Year
  Sex: Male

DRUGS (3)
  1. DULERA [Suspect]
     Indication: BRONCHITIS
     Dosage: TWO PUFFS IN THE AM AND IN THE PM DAILY
     Route: 055
     Dates: start: 201306
  2. SYMBICORT [Concomitant]
     Dosage: UNK
  3. ALBUTEROL [Concomitant]
     Dosage: UNK

REACTIONS (2)
  - Candida infection [Recovered/Resolved]
  - Product quality issue [Unknown]
